FAERS Safety Report 8047714-2 (Version None)
Quarter: 2012Q1

REPORT INFORMATION
  Report Type: 
  Country: None (occurrence: None)
  Receive Date: 20120116
  Receipt Date: 20120111
  Transmission Date: 20120608
  Serious: Yes (Death, Life-Threatening, Hospitalization)
  Sender: FDA-Public Use
  Company Number: DE-VERTEX PHARMACEUTICALS INC.-AE-2011-001833

PATIENT
  Age: 52 Year
  Sex: Male
  Weight: 80 kg

DRUGS (4)
  1. RIBAVIRIN [Concomitant]
     Indication: HEPATITIS C
     Route: 048
     Dates: start: 20110713, end: 20110905
  2. VX-950 [Suspect]
     Indication: HEPATITIS C
     Route: 048
     Dates: start: 20110713, end: 20110923
  3. RIBAVIRIN [Concomitant]
     Dosage: 400MG AM AND 600MG PM
     Route: 048
     Dates: start: 20110906, end: 20110923
  4. PEGINTERFERON ALFA-2A [Concomitant]
     Indication: HEPATITIS C
     Route: 058
     Dates: start: 20110713, end: 20110923

REACTIONS (9)
  - HYPERGLYCAEMIA [None]
  - RENAL FAILURE [None]
  - MULTI-ORGAN FAILURE [None]
  - HYPERCATABOLISM [None]
  - HEPATIC FAILURE [None]
  - DEHYDRATION [None]
  - ANAEMIA [None]
  - KETOACIDOSIS [None]
  - HEPATORENAL SYNDROME [None]
